FAERS Safety Report 9229786 (Version 1)
Quarter: 2013Q2

REPORT INFORMATION
  Report Type: Report from Study
  Country: FR (occurrence: FR)
  Receive Date: 20130415
  Receipt Date: 20130415
  Transmission Date: 20140414
  Serious: Yes (Hospitalization)
  Sender: FDA-Public Use
  Company Number: FR-BIOGENIDEC-2013BI031801

PATIENT
  Age: 29 Year
  Sex: Female

DRUGS (7)
  1. TYSABRI [Suspect]
     Indication: MULTIPLE SCLEROSIS
     Route: 042
     Dates: start: 20090123
  2. ANTI-MUSCARINIC AGENTS [Concomitant]
  3. MULTIVITAMINS [Concomitant]
  4. MUSCLE RELAXANTS [Concomitant]
  5. ANTIEPILEPTIC [Concomitant]
  6. ANTIANXIETY MEDICATION [Concomitant]
  7. AMANTADINE [Concomitant]

REACTIONS (1)
  - Intervertebral disc protrusion [Recovered/Resolved]
